FAERS Safety Report 19899857 (Version 1)
Quarter: 2021Q3

REPORT INFORMATION
  Report Type: Spontaneous
  Country: DE (occurrence: DE)
  Receive Date: 20210929
  Receipt Date: 20210929
  Transmission Date: 20211014
  Serious: Yes (Hospitalization)
  Sender: FDA-Public Use
  Company Number: DE-MYLANLABS-2021M1066543

PATIENT
  Age: 83 Year
  Sex: Female

DRUGS (13)
  1. OLANZAPIN [Concomitant]
     Active Substance: OLANZAPINE
     Dosage: 5 MG, 0?0?0?1, TABLETTEN
     Route: 048
  2. BENSERAZIDE W/LEVODOPA [Concomitant]
     Active Substance: BENSERAZIDE\LEVODOPA
     Dosage: 25|100 MG, 0.5?0.5?0.5?0, TABLETTEN
     Route: 048
  3. FOLIC ACID. [Concomitant]
     Active Substance: FOLIC ACID
     Dosage: 5 MILLIGRAM, QD
     Route: 048
  4. EISENSULFAT LOMAPHARM [Concomitant]
     Dosage: 100 MILLIGRAM, QD
     Route: 048
  5. CARBIMAZOL [Concomitant]
     Active Substance: CARBIMAZOLE
     Dosage: 10 MG, 3?0?0?0, TABLETTEN
     Route: 048
  6. SPIRIVA [Concomitant]
     Active Substance: TIOTROPIUM BROMIDE MONOHYDRATE
     Dosage: 1?0?0?0, DOSIERAEROSOL
     Route: 055
  7. TORASEMIDE MYLAN [Suspect]
     Active Substance: TORSEMIDE
     Indication: PRODUCT USED FOR UNKNOWN INDICATION
     Dosage: 5 MILLIGRAM, QD
     Route: 048
  8. SIMVASTATIN. [Concomitant]
     Active Substance: SIMVASTATIN
     Dosage: 20 MILLIGRAM, QD
     Route: 048
  9. REKAWAN [Concomitant]
     Active Substance: POTASSIUM CHLORIDE
     Dosage: 13.42 ?G, 1?0?1?0, TABLETTEN
     Route: 048
  10. DABIGATRAN [Suspect]
     Active Substance: DABIGATRAN
     Indication: PRODUCT USED FOR UNKNOWN INDICATION
     Dosage: 150 MILLIGRAM, BID
     Route: 048
  11. PANTOPRAZOL                        /01263201/ [Concomitant]
     Active Substance: PANTOPRAZOLE
     Dosage: 40 MG, 1?0?0?0, TABLETTEN
     Route: 048
  12. AMITRIPTYLIN [Concomitant]
     Active Substance: AMITRIPTYLINE
     Dosage: 25 MG, 0?0?2?0, TABLETTEN
     Route: 048
  13. BISOPROLOL [Concomitant]
     Active Substance: BISOPROLOL
     Dosage: 2.5 MILLIGRAM, BID
     Route: 048

REACTIONS (1)
  - Haematochezia [Unknown]

NARRATIVE: CASE EVENT DATE: 20210308
